FAERS Safety Report 5600570-1 (Version None)
Quarter: 2008Q1

REPORT INFORMATION
  Report Type: 
  Country: None (occurrence: None)
  Receive Date: 20080123
  Receipt Date: 20080103
  Transmission Date: 20080703
  Serious: No
  Sender: FDA-Public Use
  Company Number: US-BOEHRINGER INGELHEIM PHARMACEUTICALS, INC.-2007-BP-25269BP

PATIENT
  Sex: Female

DRUGS (8)
  1. CATAPRES-TTS-1 [Suspect]
     Indication: HYPERTENSION
     Route: 062
     Dates: start: 20060101
  2. DIOVAN [Concomitant]
     Indication: HYPERTENSION
  3. CARTIA XT [Concomitant]
     Indication: HYPERTENSION
  4. COREG [Concomitant]
  5. NEXIUM [Concomitant]
  6. ASPIRIN [Concomitant]
     Route: 048
  7. FUROSEMIDE [Concomitant]
  8. VITAMINS [Concomitant]

REACTIONS (3)
  - APPLICATION SITE ERYTHEMA [None]
  - BLOOD PRESSURE INADEQUATELY CONTROLLED [None]
  - THERAPEUTIC RESPONSE DECREASED [None]
